FAERS Safety Report 8175837-6 (Version None)
Quarter: 2012Q1

REPORT INFORMATION
  Report Type: 
  Country: None (occurrence: None)
  Receive Date: 20120228
  Receipt Date: 20120216
  Transmission Date: 20120608
  Serious: Yes (Hospitalization)
  Sender: FDA-Public Use
  Company Number: 2012SP010162

PATIENT
  Sex: Female

DRUGS (1)
  1. NUVARING [Suspect]
     Dosage: VAG
     Route: 067
     Dates: start: 20091201, end: 20100201

REACTIONS (7)
  - SOMNOLENCE [None]
  - CHILLS [None]
  - VULVOVAGINAL DRYNESS [None]
  - ANXIETY [None]
  - MENSTRUAL DISORDER [None]
  - SEXUAL DYSFUNCTION [None]
  - LIBIDO DECREASED [None]
